FAERS Safety Report 8352032-9 (Version None)
Quarter: 2012Q2

REPORT INFORMATION
  Report Type: 
  Country: None (occurrence: None)
  Receive Date: 20120509
  Receipt Date: 20120425
  Transmission Date: 20120825
  Serious: Yes (Death, Hospitalization)
  Sender: FDA-Public Use
  Company Number: FK201201255

PATIENT
  Sex: Female

DRUGS (5)
  1. ETOPOSIDE [Suspect]
     Indication: BRAIN CANCER METASTATIC
  2. DEXAMETHASONE [Suspect]
     Indication: METASTASES TO CENTRAL NERVOUS SYSTEM
  3. CAPECITABINE [Suspect]
     Indication: BREAST CANCER METASTATIC
     Dates: start: 20110222
  4. TYVERB (LAPATINIB) (LAPATINIB) [Suspect]
     Indication: BREAST CANCER METASTATIC
     Dates: start: 20110222, end: 20110921
  5. CARBOPLATIN [Suspect]
     Indication: BREAST CANCER METASTATIC

REACTIONS (26)
  - AGGRESSION [None]
  - OEDEMA [None]
  - NEUTROPHILIA [None]
  - HEADACHE [None]
  - PYURIA [None]
  - TREATMENT NONCOMPLIANCE [None]
  - DROOLING [None]
  - NAUSEA [None]
  - NAIL INFECTION [None]
  - BALANCE DISORDER [None]
  - MOUTH ULCERATION [None]
  - TOOTH DISORDER [None]
  - VOMITING [None]
  - FATIGUE [None]
  - INGROWING NAIL [None]
  - DRUG INEFFECTIVE [None]
  - HYPOAESTHESIA [None]
  - DYSARTHRIA [None]
  - URINARY TRACT DISORDER [None]
  - FOOD CRAVING [None]
  - DIARRHOEA [None]
  - DYSPEPSIA [None]
  - CONFUSIONAL STATE [None]
  - BREAST CANCER METASTATIC [None]
  - POLLAKIURIA [None]
  - NEOPLASM PROGRESSION [None]
